FAERS Safety Report 11633565 (Version 1)
Quarter: 2015Q4

REPORT INFORMATION
  Report Type: Spontaneous
  Country: FR (occurrence: FR)
  Receive Date: 20151015
  Receipt Date: 20151015
  Transmission Date: 20160304
  Serious: Yes (Hospitalization, Other)
  Sender: FDA-Public Use
  Company Number: FR-BRISTOL-MYERS SQUIBB COMPANY-BMS-2015-067491

PATIENT
  Age: 49 Year
  Sex: Male

DRUGS (10)
  1. PLAVIX [Interacting]
     Active Substance: CLOPIDOGREL BISULFATE
     Indication: PRODUCT USED FOR UNKNOWN INDICATION
     Dosage: 75 MG, QD
     Route: 048
     Dates: start: 20150710, end: 20150717
  2. KARDEGIC [Interacting]
     Active Substance: ASPIRIN LYSINE
     Indication: STENT PLACEMENT
     Dosage: 1 DF, QD
     Route: 048
     Dates: start: 20150710
  3. TRINITRINE [Concomitant]
     Active Substance: NITROGLYCERIN
     Indication: PRODUCT USED FOR UNKNOWN INDICATION
     Dosage: 2 PUFFS, PRN
     Route: 065
  4. AMLODIPINE W/OLMESARTAN [Concomitant]
     Indication: PRODUCT USED FOR UNKNOWN INDICATION
     Dosage: UNK, QD (1 IN THE MORNING)
     Route: 065
  5. PRAVASTATIN [Concomitant]
     Active Substance: PRAVASTATIN\PRAVASTATIN SODIUM
     Indication: PRODUCT USED FOR UNKNOWN INDICATION
     Dosage: 1 DF, QD (IN THE EVENING)
     Route: 065
  6. BISOCE [Concomitant]
     Active Substance: BISOPROLOL
     Indication: PRODUCT USED FOR UNKNOWN INDICATION
     Dosage: UNK, QD (1 IN THE MORNING)
     Route: 065
  7. BRILIQUE [Interacting]
     Active Substance: TICAGRELOR
     Indication: AORTIC STENT INSERTION
     Dosage: 90 MG, BID
     Route: 048
     Dates: start: 20150717
  8. SODIUM BICARBONATE. [Concomitant]
     Active Substance: SODIUM BICARBONATE
     Indication: PRODUCT USED FOR UNKNOWN INDICATION
     Dosage: UNK, QD (2 IN THE MORNING )
     Route: 065
  9. COUMADINE [Suspect]
     Active Substance: WARFARIN SODIUM
     Indication: ATRIAL FIBRILLATION
     Dosage: 4 AND 5 MG ALTERNATELY EVERY OTHER DAY
     Route: 048
     Dates: start: 2010, end: 20150720
  10. INDAPAMIDE. [Concomitant]
     Active Substance: INDAPAMIDE
     Indication: PRODUCT USED FOR UNKNOWN INDICATION
     Dosage: UNK, QD (LONG ACTING)
     Route: 065

REACTIONS (9)
  - Oesophagitis [Recovered/Resolved]
  - Melaena [Recovered/Resolved]
  - Upper gastrointestinal haemorrhage [Recovered/Resolved]
  - Asthenia [Recovered/Resolved]
  - Off label use [Unknown]
  - Stent placement [Unknown]
  - Anaemia [Recovered/Resolved]
  - Labelled drug-drug interaction medication error [Unknown]
  - Transfusion [Unknown]

NARRATIVE: CASE EVENT DATE: 20150709
